FAERS Safety Report 5839700-5 (Version None)
Quarter: 2008Q3

REPORT INFORMATION
  Report Type: 
  Country: None (occurrence: None)
  Receive Date: 20080807
  Receipt Date: 20080725
  Transmission Date: 20090109
  Serious: Yes (Hospitalization)
  Sender: FDA-Public Use
  Company Number: 2008BI018639

PATIENT
  Age: 45 Year
  Sex: Male

DRUGS (3)
  1. TYSABRI [Suspect]
     Dosage: 300 MG; QM; IV, 300 MG; QM; IV
     Route: 042
     Dates: start: 20050115, end: 20050201
  2. TYSABRI [Suspect]
     Dosage: 300 MG; QM; IV, 300 MG; QM; IV
     Route: 042
     Dates: start: 20060817
  3. SOLU-MEDROL [Concomitant]

REACTIONS (3)
  - COLON ADENOMA [None]
  - COLON CANCER [None]
  - COLONIC POLYP [None]
